FAERS Safety Report 9098569 (Version 2)
Quarter: 2013Q1

REPORT INFORMATION
  Report Type: Spontaneous
  Country: ES (occurrence: ES)
  Receive Date: 20130213
  Receipt Date: 20130218
  Transmission Date: 20140127
  Serious: Yes (Death)
  Sender: FDA-Public Use
  Company Number: ES-ROCHE-1190461

PATIENT
  Sex: Female

DRUGS (6)
  1. HERCEPTIN [Suspect]
     Indication: BREAST CANCER
     Route: 042
     Dates: start: 20120403, end: 20130110
  2. DEPRAX (SPAIN) [Concomitant]
  3. HYDROCORTISONE [Concomitant]
     Indication: PAIN
     Route: 048
  4. FENTANYL [Concomitant]
     Indication: PAIN
     Route: 058
     Dates: start: 20121011
  5. TAMOXIFEN [Concomitant]
     Indication: BREAST CANCER
     Route: 048
     Dates: start: 20120801
  6. VOLTAREN [Concomitant]
     Indication: PAIN
     Route: 048
     Dates: start: 20120120

REACTIONS (1)
  - Death [Fatal]
